FAERS Safety Report 6377328-1 (Version None)
Quarter: 2009Q3

REPORT INFORMATION
  Report Type: 
  Country: None (occurrence: None)
  Receive Date: 20090923
  Receipt Date: 20090923
  Transmission Date: 20100115
  Serious: No
  Sender: FDA-Public Use
  Company Number: None

PATIENT
  Age: 88 Year
  Sex: Female
  Weight: 65.8 kg

DRUGS (7)
  1. OXYCODONE HCL AND ACETAMINOPHEN [Suspect]
     Indication: PAIN
     Dosage: 5MG/325MG PO Q4H
     Route: 048
  2. HEPARIN [Concomitant]
  3. CLOZAPINE [Concomitant]
  4. LANSOPRAZOLE [Concomitant]
  5. LEVOCARNITINE [Concomitant]
  6. ALBUTEROL [Concomitant]
  7. DOCUSATE [Concomitant]

REACTIONS (2)
  - DEPRESSED LEVEL OF CONSCIOUSNESS [None]
  - LETHARGY [None]
